FAERS Safety Report 15553581 (Version 2)
Quarter: 2018Q4

REPORT INFORMATION
  Report Type: Spontaneous
  Country: US (occurrence: US)
  Receive Date: 20181026
  Receipt Date: 20181107
  Transmission Date: 20190205
  Serious: No
  Sender: FDA-Public Use
  Company Number: US-BAUSCH-BL-2018-026887

PATIENT
  Age: 77 Year
  Sex: Female

DRUGS (1)
  1. BRIMONIDINE TARTRATE OPHTHALMIC SOLUTION 0.2% [Suspect]
     Active Substance: BRIMONIDINE TARTRATE
     Indication: BORDERLINE GLAUCOMA
     Dosage: DAILY
     Route: 047
     Dates: start: 201801

REACTIONS (3)
  - Product leakage [Unknown]
  - Product use complaint [Unknown]
  - Eye infection [Recovered/Resolved]

NARRATIVE: CASE EVENT DATE: 201809
